FAERS Safety Report 6644894-8 (Version None)
Quarter: 2010Q1

REPORT INFORMATION
  Report Type: 
  Country: None (occurrence: None)
  Receive Date: 20100322
  Receipt Date: 20100309
  Transmission Date: 20100710
  Serious: Yes (Hospitalization)
  Sender: FDA-Public Use
  Company Number: PHEH2010US02260

PATIENT
  Sex: Female
  Weight: 95.238 kg

DRUGS (10)
  1. RECLAST [Suspect]
     Indication: OSTEOPOROSIS
     Dosage: 5MG/100ML, YEARLY
     Route: 042
     Dates: start: 20100129, end: 20100129
  2. MULTI-VITAMIN [Concomitant]
     Route: 048
  3. MORPHINAN [Concomitant]
  4. COUMADIN [Concomitant]
     Route: 048
  5. LASIX [Concomitant]
     Route: 048
  6. METFORMIN HYDROCHLORIDE [Concomitant]
     Route: 048
  7. FOLIC ACID [Concomitant]
     Dosage: UNK
     Route: 048
  8. SOMA [Concomitant]
     Dosage: UNK
     Route: 048
  9. METANX [Concomitant]
     Route: 048
  10. CAT D [Concomitant]

REACTIONS (4)
  - CHEST PAIN [None]
  - EPISTAXIS [None]
  - NAUSEA [None]
  - PAIN IN EXTREMITY [None]
